FAERS Safety Report 7888227-8 (Version None)
Quarter: 2011Q4

REPORT INFORMATION
  Report Type: 
  Country: None (occurrence: None)
  Receive Date: 20111102
  Receipt Date: 20111102
  Transmission Date: 20120403
  Serious: Yes (Life-Threatening)
  Sender: FDA-Public Use
  Company Number: None

PATIENT
  Age: 81 Year
  Sex: Male

DRUGS (1)
  1. DECITABINE [Suspect]
     Dosage: 20MG/M2 D1-5 10WEEK CYCLE IV
     Route: 042
     Dates: start: 20110801, end: 20110805

REACTIONS (1)
  - THROMBOCYTOPENIA [None]
